FAERS Safety Report 15043684 (Version 5)
Quarter: 2018Q4

REPORT INFORMATION
  Report Type: Spontaneous
  Country: CA (occurrence: CA)
  Receive Date: 20180621
  Receipt Date: 20181210
  Transmission Date: 20190204
  Serious: Yes (Hospitalization, Other)
  Sender: FDA-Public Use
  Company Number: CA-CELLTRION INC.-2018CA020769

PATIENT

DRUGS (5)
  1. APO-METHOTREXATE [Concomitant]
     Active Substance: METHOTREXATE
  2. INFLECTRA [Suspect]
     Active Substance: INFLIXIMAB-DYYB
     Indication: PSORIATIC ARTHROPATHY
     Dosage: 200 MG, CYCLIC (EVERY 0, 2,6 WEEKS, THEN EVERY 8  WEEKS)
     Route: 042
     Dates: start: 20170208
  3. APO-FOLIC ACID [Concomitant]
     Active Substance: FOLIC ACID
  4. INFLECTRA [Suspect]
     Active Substance: INFLIXIMAB-DYYB
     Dosage: 200 MG, CYCLIC (EVERY 0, 2,6 WEEKS, THEN EVERY 8  WEEKS)
     Route: 042
     Dates: start: 20180412
  5. INFLECTRA [Suspect]
     Active Substance: INFLIXIMAB-DYYB
     Dosage: 200 MG, CYCLIC (EVERY 0, 2,6 WEEKS, THEN EVERY 8  WEEKS)
     Route: 042
     Dates: start: 20181009

REACTIONS (7)
  - Renal disorder [Not Recovered/Not Resolved]
  - Pneumonia [Not Recovered/Not Resolved]
  - Hepatomegaly [Not Recovered/Not Resolved]
  - Cerebrovascular accident [Unknown]
  - Weight bearing difficulty [Unknown]
  - Cardiac failure congestive [Recovering/Resolving]
  - Myocardial infarction [Recovering/Resolving]
